FAERS Safety Report 9601679 (Version 1)
Quarter: 2013Q4

REPORT INFORMATION
  Report Type: Spontaneous
  Country: US (occurrence: None)
  Receive Date: 20131004
  Receipt Date: 20131004
  Transmission Date: 20140711
  Serious: No
  Sender: FDA-Public Use
  Company Number: None

PATIENT
  Sex: Female
  Weight: 104.78 kg

DRUGS (1)
  1. FENTANYL [Suspect]

REACTIONS (3)
  - Drug ineffective [None]
  - Product substitution issue [None]
  - Therapeutic response unexpected with drug substitution [None]
